FAERS Safety Report 12932396 (Version 1)
Quarter: 2016Q4

REPORT INFORMATION
  Report Type: Spontaneous
  Country: AU (occurrence: AU)
  Receive Date: 20161111
  Receipt Date: 20161111
  Transmission Date: 20170207
  Serious: Yes (Other)
  Sender: FDA-Public Use
  Company Number: AU-ALKEM LABORATORIES LIMITED-AU-ALKEM-2016-00294

PATIENT
  Age: 36 Year
  Sex: Female

DRUGS (4)
  1. CLONAZEPAM. [Concomitant]
     Active Substance: CLONAZEPAM
     Indication: EPILEPSY
     Dosage: UNKNOWN
  2. LAMOTRIGINE. [Suspect]
     Active Substance: LAMOTRIGINE
     Indication: EPILEPSY
     Dosage: 600 MG, UNK
  3. PRIMIDONE. [Concomitant]
     Active Substance: PRIMIDONE
     Indication: EPILEPSY
     Dosage: UNKNOWN
  4. LAMOTRIGINE. [Suspect]
     Active Substance: LAMOTRIGINE
     Dosage: 400 MG, UNK

REACTIONS (5)
  - Psychotic disorder [Recovered/Resolved]
  - Thinking abnormal [Recovered/Resolved]
  - Hallucination, auditory [Recovered/Resolved]
  - Aggression [Recovered/Resolved]
  - Persecutory delusion [Recovered/Resolved]
